FAERS Safety Report 8188348-9 (Version None)
Quarter: 2012Q1

REPORT INFORMATION
  Report Type: 
  Country: None (occurrence: None)
  Receive Date: 20120221
  Receipt Date: 20110729
  Transmission Date: 20120608
  Serious: Yes (Hospitalization, Other)
  Sender: FDA-Public Use
  Company Number: PHHY2011US39145

PATIENT
  Age: 17 Year
  Sex: Female

DRUGS (1)
  1. TOBI [Suspect]
     Dosage: 300 MG, BID (28 DAYS ON AND 28 DAYS OFF CYCLE), INHALATION
     Route: 055
     Dates: start: 20110316, end: 20110510

REACTIONS (1)
  - RESPIRATORY TRACT INFECTION [None]
